FAERS Safety Report 16861884 (Version 2)
Quarter: 2020Q3

REPORT INFORMATION
  Report Type: Report from Study
  Country: IN (occurrence: IN)
  Receive Date: 20190927
  Receipt Date: 20191004
  Transmission Date: 20201105
  Serious: Yes (Hospitalization)
  Sender: FDA-Public Use
  Company Number: IN-ROCHE-2416515

PATIENT
  Age: 40 Year
  Sex: Male
  Weight: 61 kg

DRUGS (1)
  1. EMICIZUMAB. [Suspect]
     Active Substance: EMICIZUMAB
     Indication: FACTOR VIII DEFICIENCY
     Dosage: DATE OF MOST RECENT DOSE OF EMICIZUMAB PRIOR TO AE  AND SAE ONSET: 15/SEP/2019 (17:05).
     Route: 058
     Dates: start: 20180608

REACTIONS (1)
  - Haemarthrosis [Recovered/Resolved]

NARRATIVE: CASE EVENT DATE: 20190916
